FAERS Safety Report 5827720-6 (Version None)
Quarter: 2008Q3

REPORT INFORMATION
  Report Type: 
  Country: None (occurrence: None)
  Receive Date: 20080730
  Receipt Date: 20080718
  Transmission Date: 20090109
  Serious: Yes (Death, Hospitalization)
  Sender: FDA-Public Use
  Company Number: JP-AMGEN-US292920

PATIENT
  Sex: Male

DRUGS (13)
  1. PANITUMUMAB [Suspect]
     Indication: SQUAMOUS CELL CARCINOMA
     Route: 042
     Dates: start: 20080515, end: 20080611
  2. CARBOPLATIN [Suspect]
     Route: 065
     Dates: start: 20080611
  3. FLUOROURACIL [Suspect]
     Route: 065
     Dates: start: 20080515
  4. CISPLATIN [Suspect]
     Route: 065
     Dates: start: 20080515
  5. VORICONAZOLE [Concomitant]
     Route: 042
     Dates: start: 20080710
  6. LOSARTAN POTASSIUM [Concomitant]
     Route: 048
  7. ADALAT [Concomitant]
     Route: 048
  8. ZANTAC [Concomitant]
     Route: 048
  9. SUCRALFATE [Concomitant]
     Route: 048
  10. HYPEN [Concomitant]
     Route: 048
  11. OXYCONTIN [Concomitant]
     Route: 048
     Dates: start: 20080614
  12. DEXAMETHASONE [Concomitant]
     Route: 048
  13. LEVOFLOXACIN [Concomitant]
     Route: 048
     Dates: start: 20080628

REACTIONS (1)
  - PNEUMONIA ASPIRATION [None]
